FAERS Safety Report 6244748-5 (Version None)
Quarter: 2009Q2

REPORT INFORMATION
  Report Type: 
  Country: None (occurrence: None)
  Receive Date: 20090623
  Receipt Date: 20090615
  Transmission Date: 20091009
  Serious: Yes (Hospitalization)
  Sender: FDA-Public Use
  Company Number: ADR4642009

PATIENT
  Age: 39 Year
  Sex: Female

DRUGS (4)
  1. CIPROFLAXACIN [Suspect]
     Indication: ABDOMINAL PAIN LOWER
     Dosage: 500 MG BID ORAL
     Route: 048
  2. CIPROFLAXACIN [Suspect]
     Indication: ABSCESS
     Dosage: 500 MG BID ORAL
     Route: 048
  3. CIPROFLAXACIN [Suspect]
     Indication: DIVERTICULUM
     Dosage: 500 MG BID ORAL
     Route: 048
  4. METRONIDAZOLE [Concomitant]

REACTIONS (6)
  - HEPATITIS [None]
  - HEPATOTOXICITY [None]
  - IDIOSYNCRATIC DRUG REACTION [None]
  - INTERNATIONAL NORMALISED RATIO INCREASED [None]
  - RENAL LIPOMATOSIS [None]
  - SPLENOMEGALY [None]
